FAERS Safety Report 8306855-2 (Version None)
Quarter: 2012Q1

REPORT INFORMATION
  Report Type: 
  Country: None (occurrence: None)
  Receive Date: 20120327
  Receipt Date: 20090518
  Transmission Date: 20120608
  Serious: Yes (Hospitalization)
  Sender: FDA-Public Use
  Company Number: PHEH2008US09954

PATIENT
  Age: 72 Year
  Sex: Female

DRUGS (1)
  1. GLEEVEC [Suspect]
     Dosage: 400 MG, QD ; 200 MG, QD, ORAL ; 50 MG, QD, ORAL ; 100 MG, QD, ORAL
     Route: 048
     Dates: start: 20070201

REACTIONS (12)
  - DYSPNOEA [None]
  - CHEILITIS [None]
  - ASTHENIA [None]
  - RASH [None]
  - CHILLS [None]
  - PYREXIA [None]
  - SKIN EXFOLIATION [None]
  - DRUG INTOLERANCE [None]
  - LIP DRY [None]
  - DYSPHONIA [None]
  - CHAPPED LIPS [None]
  - CHEST PAIN [None]
